FAERS Safety Report 5222339-2 (Version None)
Quarter: 2007Q1

REPORT INFORMATION
  Report Type: 
  Country: None (occurrence: None)
  Receive Date: 20070124
  Receipt Date: 20070116
  Transmission Date: 20070707
  Serious: Yes (Death, Hospitalization, Other)
  Sender: FDA-Public Use
  Company Number: 07-0005P0

PATIENT
  Age: 23 Year
  Sex: Male

DRUGS (1)
  1. MEFENAMIC ACID [Suspect]
     Indication: PAIN

REACTIONS (5)
  - COMA [None]
  - MALAISE [None]
  - PYREXIA [None]
  - RENAL DISORDER [None]
  - SWELLING [None]
